FAERS Safety Report 6660569-3 (Version None)
Quarter: 2010Q1

REPORT INFORMATION
  Report Type: 
  Country: None (occurrence: None)
  Receive Date: 20100331
  Receipt Date: 20100323
  Transmission Date: 20100710
  Serious: No
  Sender: FDA-Public Use
  Company Number: IT-BRISTOL-MYERS SQUIBB COMPANY-15012602

PATIENT
  Age: 37 Year
  Sex: Female

DRUGS (5)
  1. ORENCIA [Suspect]
     Indication: RHEUMATOID ARTHRITIS
     Route: 042
     Dates: start: 20091127, end: 20091127
  2. METHOTREXATE [Concomitant]
  3. FOLINA [Concomitant]
     Dosage: 1 DF= 1 TABS
  4. DELTACORTENE [Concomitant]
  5. CALCIUM + VITAMIN D [Concomitant]

REACTIONS (1)
  - ERYTHEMA NODOSUM [None]
